FAERS Safety Report 9962725 (Version 1)
Quarter: 2014Q1

REPORT INFORMATION
  Report Type: Report from Study
  Country: US (occurrence: US)
  Receive Date: 20140305
  Receipt Date: 20140305
  Transmission Date: 20141002
  Serious: No
  Sender: FDA-Public Use
  Company Number: US-ABBVIE-13P-163-1112564-00

PATIENT
  Sex: Male

DRUGS (9)
  1. HUMIRA [Suspect]
     Indication: PSORIASIS
     Dates: start: 20130420
  2. GLIMEPIRIDE [Concomitant]
     Indication: DIABETES MELLITUS
  3. METFORMIN [Concomitant]
     Indication: DIABETES MELLITUS
  4. ASA [Concomitant]
     Indication: ANTICOAGULANT THERAPY
  5. LISINOPRIL [Concomitant]
     Indication: HYPERTENSION
     Dosage: 20/12.5 MG TWO ONCE DAILY
  6. SIMVASTATIN [Concomitant]
     Indication: BLOOD CHOLESTEROL INCREASED
  7. METOPROLOL [Concomitant]
     Indication: HYPERTENSION
  8. CLOBETASOL [Concomitant]
     Indication: PSORIASIS
     Dosage: ON HEAD
  9. SOLUTION ON HEAD [Concomitant]
     Indication: PSORIASIS

REACTIONS (1)
  - Arthralgia [Not Recovered/Not Resolved]
